FAERS Safety Report 8450590-7 (Version None)
Quarter: 2012Q2

REPORT INFORMATION
  Report Type: 
  Country: None (occurrence: None)
  Receive Date: 20120620
  Receipt Date: 20120612
  Transmission Date: 20120825
  Serious: Yes (Other)
  Sender: FDA-Public Use
  Company Number: CH-ABBOTT-12P-151-0945223-00

PATIENT
  Sex: Male

DRUGS (4)
  1. LEUPROLIDE ACETATE [Suspect]
     Dates: start: 20110705
  2. LEUPROLIDE ACETATE [Suspect]
     Indication: PROSTATE CANCER
     Dates: start: 20110801
  3. LEUPROLIDE ACETATE [Suspect]
     Indication: PROSTATE CANCER
     Dates: start: 20100526
  4. LEUPROLIDE ACETATE [Suspect]
     Dates: start: 20111107, end: 20111206

REACTIONS (4)
  - PROSTATIC SPECIFIC ANTIGEN INCREASED [None]
  - PROSTATECTOMY [None]
  - DRUG INEFFECTIVE [None]
  - PROSTATE CANCER METASTATIC [None]
